FAERS Safety Report 22651412 (Version 1)
Quarter: 2023Q2

REPORT INFORMATION
  Report Type: Report from Study
  Country: US (occurrence: US)
  Receive Date: 20230628
  Receipt Date: 20230628
  Transmission Date: 20230721
  Serious: Yes (Other)
  Sender: FDA-Public Use
  Company Number: US-PFIZER INC-202101374479

PATIENT
  Sex: Female

DRUGS (4)
  1. LYRICA [Suspect]
     Active Substance: PREGABALIN
     Indication: Generalised tonic-clonic seizure
     Dosage: 150-600 MG/DAY
     Route: 065
  2. LYRICA [Suspect]
     Active Substance: PREGABALIN
     Indication: Arteriovenous malformation
  3. LYRICA [Suspect]
     Active Substance: PREGABALIN
     Indication: Pain
  4. LYRICA [Suspect]
     Active Substance: PREGABALIN
     Indication: Neuralgia

REACTIONS (4)
  - COVID-19 [Unknown]
  - Brain fog [Unknown]
  - Memory impairment [Unknown]
  - Bronchitis [Unknown]
